FAERS Safety Report 5105186-1 (Version None)
Quarter: 2006Q3

REPORT INFORMATION
  Report Type: 
  Country: None (occurrence: None)
  Receive Date: 20060911
  Receipt Date: 20060830
  Transmission Date: 20061208
  Serious: Yes (Other)
  Sender: FDA-Public Use
  Company Number: 229334

PATIENT
  Sex: Female

DRUGS (4)
  1. LUCENTIS [Suspect]
     Indication: MACULAR DEGENERATION
     Dosage: INTRAVITREAL
     Dates: start: 20060830
  2. ANTIBIOTICS (ANTIBIOTICS NOS) [Concomitant]
  3. FOSAMAX [Concomitant]
  4. GLUCOPHAGE [Concomitant]

REACTIONS (6)
  - EYE PAIN [None]
  - PAIN [None]
  - PHOTOPHOBIA [None]
  - RETINAL SCAR [None]
  - SUPERFICIAL INJURY OF EYE [None]
  - VISUAL ACUITY REDUCED [None]
